FAERS Safety Report 9738115 (Version 1)
Quarter: 2013Q4

REPORT INFORMATION
  Report Type: Spontaneous
  Country: US (occurrence: US)
  Receive Date: 20131208
  Receipt Date: 20131208
  Transmission Date: 20140711
  Serious: No
  Sender: FDA-Public Use
  Company Number: -SAAVPROD-RENA-1001946

PATIENT
  Age: 2 Year
  Sex: Female

DRUGS (1)
  1. SEVELAMER HYDROCHLORIDE [Suspect]
     Indication: HYPERPHOSPHATAEMIA
     Dosage: 0.8 G, TID
     Route: 048
     Dates: start: 20130721

REACTIONS (1)
  - Medication error [Unknown]
